FAERS Safety Report 7744213-X (Version None)
Quarter: 2011Q3

REPORT INFORMATION
  Report Type: 
  Country: None (occurrence: None)
  Receive Date: 20110909
  Receipt Date: 20110909
  Transmission Date: 20111222
  Serious: No
  Sender: FDA-Public Use
  Company Number: None

PATIENT
  Sex: Female
  Weight: 66.2252 kg

DRUGS (1)
  1. PROLIA [Suspect]
     Indication: SENILE OSTEOPOROSIS
     Dosage: 60MG Q 6 MONTHS SQ INJ.
     Route: 058
     Dates: start: 20110826

REACTIONS (4)
  - BURNING SENSATION [None]
  - SKIN WARM [None]
  - PRURITUS [None]
  - ERYTHEMA [None]
